FAERS Safety Report 23858961 (Version 1)
Quarter: 2024Q2

REPORT INFORMATION
  Report Type: Spontaneous
  Country: US (occurrence: None)
  Receive Date: 20240515
  Receipt Date: 20240515
  Transmission Date: 20240716
  Serious: Yes (Hospitalization)
  Sender: FDA-Public Use
  Company Number: None

PATIENT
  Age: 64 Year
  Sex: Male
  Weight: 78 kg

DRUGS (1)
  1. BUDESONIDE\FORMOTEROL FUMARATE [Suspect]
     Active Substance: BUDESONIDE\FORMOTEROL FUMARATE
     Indication: Product used for unknown indication
     Dosage: OTHER QUANTITY : 2 PUFFS;?
     Route: 055
     Dates: start: 20231113, end: 20240211

REACTIONS (5)
  - Dizziness [None]
  - Myalgia [None]
  - Hypertension [None]
  - Nausea [None]
  - Muscle spasms [None]

NARRATIVE: CASE EVENT DATE: 20240229
